FAERS Safety Report 24659797 (Version 15)
Quarter: 2025Q4

REPORT INFORMATION
  Report Type: Spontaneous
  Country: EU (occurrence: EU)
  Receive Date: 20241125
  Receipt Date: 20251002
  Transmission Date: 20260117
  Serious: Yes (Other)
  Sender: ABBVIE
  Company Number: EU-ABBOTT-2024A-1392366

PATIENT
  Age: 89 Year
  Sex: Male

DRUGS (1)
  1. PANCRELIPASE [Suspect]
     Active Substance: PANCRELIPASE
     Indication: Product used for unknown indication
     Route: 048

REACTIONS (1)
  - Pancreatitis [Unknown]
